FAERS Safety Report 25467827 (Version 1)
Quarter: 2025Q2

REPORT INFORMATION
  Report Type: Spontaneous
  Country: US (occurrence: None)
  Receive Date: 20250620
  Receipt Date: 20250620
  Transmission Date: 20250717
  Serious: Yes (Other)
  Sender: FDA-CTU
  Company Number: None

PATIENT
  Age: 38 Year
  Sex: Female
  Weight: 69.75 kg

DRUGS (7)
  1. ZICAM COLD REMEDY MEDICATED NASAL SWABS [Suspect]
     Active Substance: HOMEOPATHICS
     Indication: Nasopharyngitis
     Route: 050
     Dates: start: 20250502, end: 20250506
  2. ZICAM COLD REMEDY MEDICATED NASAL SWABS [Suspect]
     Active Substance: HOMEOPATHICS
     Indication: Influenza like illness
  3. IBUPROFEN [Suspect]
     Active Substance: IBUPROFEN
  4. MUCINEX [Suspect]
     Active Substance: GUAIFENESIN
  5. LO LOESTRIN FE [Concomitant]
     Active Substance: ETHINYL ESTRADIOL\NORETHINDRONE ACETATE
  6. ESCITALOPRAM [Concomitant]
     Active Substance: ESCITALOPRAM OXALATE
  7. METHYLPHENIDATE [Concomitant]
     Active Substance: METHYLPHENIDATE

REACTIONS (11)
  - Symptom recurrence [None]
  - Secretion discharge [None]
  - Productive cough [None]
  - Cough [None]
  - Chest pain [None]
  - Dyspnoea [None]
  - Pain [None]
  - Fatigue [None]
  - Headache [None]
  - Respiratory syncytial virus infection [None]
  - Sputum discoloured [None]

NARRATIVE: CASE EVENT DATE: 20250502
